FAERS Safety Report 5512839-X (Version None)
Quarter: 2007Q4

REPORT INFORMATION
  Report Type: 
  Country: None (occurrence: None)
  Receive Date: 20071108
  Receipt Date: 20071019
  Transmission Date: 20080405
  Serious: Yes (Life-Threatening, Disabling)
  Sender: FDA-Public Use
  Company Number: 02100-JPN-07-0662

PATIENT
  Age: 81 Year
  Sex: Male

DRUGS (2)
  1. CILOSTAZOL [Suspect]
     Dosage: ORAL
     Route: 048
     Dates: end: 20070925
  2. ACETAMINOPHEN [Suspect]
     Dosage: RECTAL
     Route: 054
     Dates: end: 20070925

REACTIONS (2)
  - LIVER DISORDER [None]
  - RHABDOMYOLYSIS [None]
